FAERS Safety Report 15855219 (Version 1)
Quarter: 2019Q1

REPORT INFORMATION
  Report Type: Spontaneous
  Country: US (occurrence: US)
  Receive Date: 20190122
  Receipt Date: 20190122
  Transmission Date: 20190417
  Serious: No
  Sender: FDA-Public Use
  Company Number: US-PFIZER INC-2019028298

PATIENT
  Sex: Female

DRUGS (4)
  1. REGLAN [Suspect]
     Active Substance: METOCLOPRAMIDE HYDROCHLORIDE
     Dosage: UNK
  2. VANCOMYCIN HCL [Suspect]
     Active Substance: VANCOMYCIN HYDROCHLORIDE
     Dosage: UNK
  3. PREVAGEN [Suspect]
     Active Substance: DIETARY SUPPLEMENT
     Dosage: UNK
  4. CAMPHOR [Suspect]
     Active Substance: CAMPHOR
     Dosage: UNK

REACTIONS (1)
  - Drug hypersensitivity [Unknown]
